FAERS Safety Report 8653683 (Version 3)
Quarter: 2014Q4

REPORT INFORMATION
  Report Type: Report from Study
  Country: AR (occurrence: AR)
  Receive Date: 20120709
  Receipt Date: 20141117
  Transmission Date: 20150529
  Serious: Yes (Hospitalization, Other)
  Sender: FDA-Public Use
  Company Number: PHHY2012AR058043

PATIENT
  Sex: Female

DRUGS (6)
  1. TRILEPTAL [Suspect]
     Active Substance: OXCARBAZEPINE
     Dosage: 1200 MG, QD (TWO OF 300MG AND ONE OF 600MG)
     Route: 048
  2. DIOVAN [Suspect]
     Active Substance: VALSARTAN
     Indication: HYPERTENSION
     Dosage: 160 MG, QD
     Route: 065
     Dates: start: 2010
  3. TRILEPTAL [Suspect]
     Active Substance: OXCARBAZEPINE
     Indication: PETIT MAL EPILEPSY
     Dosage: 1200 MG, QD (TWO OF 300MG AND ONE OF 600MG)
     Route: 048
     Dates: end: 201003
  4. DIOVAN [Suspect]
     Active Substance: VALSARTAN
     Dosage: 240 MG, QD
     Route: 065
  5. DIOVAN [Suspect]
     Active Substance: VALSARTAN
     Dosage: 320 MG, QD
     Route: 048
  6. CORVIS [Concomitant]
     Indication: PRODUCT USED FOR UNKNOWN INDICATION
     Route: 065

REACTIONS (10)
  - Eye irritation [Unknown]
  - Loss of consciousness [Unknown]
  - Bronchospasm [Not Recovered/Not Resolved]
  - Maculopathy [Unknown]
  - Bronchitis [Not Recovered/Not Resolved]
  - Hyponatraemia [Unknown]
  - Seizure [Unknown]
  - Hypertension [Recovering/Resolving]
  - Chronic obstructive pulmonary disease [Not Recovered/Not Resolved]
  - Nasal congestion [Unknown]

NARRATIVE: CASE EVENT DATE: 2010
